FAERS Safety Report 7361616-6 (Version None)
Quarter: 2011Q1

REPORT INFORMATION
  Report Type: 
  Country: None (occurrence: None)
  Receive Date: 20110318
  Receipt Date: 20110309
  Transmission Date: 20110831
  Serious: Yes (Other)
  Sender: FDA-Public Use
  Company Number: US-JNJFOC-20070107331

PATIENT
  Sex: Male

DRUGS (1)
  1. RISPERDAL [Suspect]
     Indication: MENTAL DISORDER
     Route: 048

REACTIONS (3)
  - TYPE 2 DIABETES MELLITUS [None]
  - BLINDNESS [None]
  - HYPERTENSION [None]
